FAERS Safety Report 12420092 (Version 2)
Quarter: 2016Q3

REPORT INFORMATION
  Report Type: Spontaneous
  Country: CA (occurrence: CA)
  Receive Date: 20160531
  Receipt Date: 20160719
  Transmission Date: 20161109
  Serious: Yes (Life-Threatening, Hospitalization, Other)
  Sender: FDA-Public Use
  Company Number: CA-OTSUKA-2016_009641

PATIENT
  Age: 59 Year
  Sex: Male
  Weight: 70 kg

DRUGS (13)
  1. CODEIN [Concomitant]
     Active Substance: CODEINE
     Indication: OSTEOARTHRITIS
     Dosage: UNK
     Route: 065
     Dates: start: 1979
  2. APO-DIAZEPAM [Concomitant]
     Indication: PRODUCT USED FOR UNKNOWN INDICATION
     Dosage: 3 DF, QD (TAKE 3 TABLETS ONCE DAILY AT BEDTIME)
     Route: 065
     Dates: start: 20160419
  3. ABILIFY MAINTENA [Suspect]
     Active Substance: ARIPIPRAZOLE
     Indication: PARANOIA
     Dosage: 400 MG, QM
     Route: 030
     Dates: start: 20151021
  4. ABILIFY MAINTENA [Suspect]
     Active Substance: ARIPIPRAZOLE
     Dosage: 400 MG, QM
     Route: 030
     Dates: start: 20160322
  5. ABILIFY MAINTENA [Suspect]
     Active Substance: ARIPIPRAZOLE
     Dosage: 400 MG, QM
     Route: 030
     Dates: start: 20151118
  6. ABILIFY MAINTENA [Suspect]
     Active Substance: ARIPIPRAZOLE
     Dosage: 400 MG, QM
     Route: 030
     Dates: start: 20151216
  7. ABILIFY MAINTENA [Suspect]
     Active Substance: ARIPIPRAZOLE
     Dosage: 400 MG, QM
     Route: 030
     Dates: start: 20160222
  8. APO-DIAZEPAM [Concomitant]
     Dosage: 3 DF, QD
     Route: 065
     Dates: start: 20160412
  9. APO-DIAZEPAM [Concomitant]
     Dosage: 1 DF, UNK
     Route: 065
     Dates: start: 20160302
  10. FLAMAZINE [Concomitant]
     Active Substance: SILVER SULFADIAZINE
     Indication: PRODUCT USED FOR UNKNOWN INDICATION
     Dosage: 50 G FOR 15 DAYS (APPLY TO AFFECTED AREA ONLY)
     Route: 065
  11. ABILIFY MAINTENA [Suspect]
     Active Substance: ARIPIPRAZOLE
     Dosage: 400 MG, QM
     Route: 030
     Dates: start: 20160125
  12. ABILIFY MAINTENA [Suspect]
     Active Substance: ARIPIPRAZOLE
     Dosage: 400 MG, QM
     Route: 030
     Dates: start: 20160419
  13. RATIO-CODEINE [Concomitant]
     Indication: PRODUCT USED FOR UNKNOWN INDICATION
     Dosage: 4 DF, QD ()TAKE 2 TABLET TWICE DAILY)
     Route: 065

REACTIONS (7)
  - Off label use [Unknown]
  - Neuroleptic malignant syndrome [Unknown]
  - Rhabdomyolysis [Recovered/Resolved]
  - Seizure [Unknown]
  - Respiratory failure [Unknown]
  - Acute kidney injury [Unknown]
  - Syncope [Unknown]

NARRATIVE: CASE EVENT DATE: 20160420
